FAERS Safety Report 24273315 (Version 1)
Quarter: 2024Q3

REPORT INFORMATION
  Report Type: Spontaneous
  Country: ES (occurrence: ES)
  Receive Date: 20240902
  Receipt Date: 20240902
  Transmission Date: 20241017
  Serious: Yes (Hospitalization)
  Sender: TEVA
  Company Number: None

PATIENT
  Age: 86 Year
  Sex: Male
  Weight: 68.2 kg

DRUGS (3)
  1. OLMESARTAN [Suspect]
     Active Substance: OLMESARTAN
     Indication: Hypertension
     Dosage: 1-0-0; OLMESARTAN 28 TABLETS
     Route: 048
     Dates: start: 20240105, end: 20240204
  2. BARNIDIPINE HYDROCHLORIDE [Suspect]
     Active Substance: BARNIDIPINE HYDROCHLORIDE
     Indication: Hypertension
     Dosage: 1-0-0
     Route: 048
     Dates: start: 20221004, end: 20240204
  3. COMBIGAN [Suspect]
     Active Substance: BRIMONIDINE TARTRATE\TIMOLOL MALEATE
     Indication: Herpes ophthalmic
     Dosage: 1-0-1; COMBIGAN 2 MG/ML + 5 MG/ML EYEWEAR SOLUTION, 1 BOTTLE OF 5 ML
     Route: 065
     Dates: start: 20221213, end: 20240205

REACTIONS (2)
  - Bradycardia [Recovered/Resolved]
  - Syncope [Recovered/Resolved]

NARRATIVE: CASE EVENT DATE: 20240202
